FAERS Safety Report 8272975-4 (Version None)
Quarter: 2012Q2

REPORT INFORMATION
  Report Type: 
  Country: None (occurrence: None)
  Receive Date: 20120411
  Receipt Date: 20120330
  Transmission Date: 20120825
  Serious: Yes (Other)
  Sender: FDA-Public Use
  Company Number: FR-JNJFOC-20120309330

PATIENT

DRUGS (1)
  1. INFLIXIMAB, RECOMBINANT [Suspect]
     Indication: PRODUCT USED FOR UNKNOWN INDICATION
     Route: 042

REACTIONS (5)
  - HAEMATOLOGICAL MALIGNANCY [None]
  - BREAST CANCER [None]
  - SKIN CANCER [None]
  - GASTROINTESTINAL CARCINOMA [None]
  - LUNG NEOPLASM MALIGNANT [None]
